FAERS Safety Report 8440545-0 (Version None)
Quarter: 2012Q2

REPORT INFORMATION
  Report Type: 
  Country: None (occurrence: None)
  Receive Date: 20120615
  Receipt Date: 20120607
  Transmission Date: 20120825
  Serious: Yes (Hospitalization)
  Sender: FDA-Public Use
  Company Number: GB-BRISTOL-MYERS SQUIBB COMPANY-16671828

PATIENT
  Age: 27 Year
  Sex: Male
  Weight: 56 kg

DRUGS (4)
  1. EMTRICITABINE+RILPIVIRINE+TENOFOVIR DISOPROXIL FUMARATE [Concomitant]
     Indication: HIV INFECTION
     Route: 065
     Dates: end: 20120514
  2. BLEOMYCIN SULFATE [Suspect]
     Indication: TESTIS CANCER
     Route: 065
     Dates: start: 20120522
  3. RALTEGRAVIR [Concomitant]
  4. ABACAVIR SULFATE/LAMIVUDINE [Concomitant]

REACTIONS (1)
  - SEPSIS [None]
